FAERS Safety Report 5825263-7 (Version None)
Quarter: 2008Q3

REPORT INFORMATION
  Report Type: 
  Country: None (occurrence: None)
  Receive Date: 20080724
  Receipt Date: 20080724
  Transmission Date: 20090109
  Serious: Yes (Death)
  Sender: FDA-Public Use
  Company Number: None

PATIENT
  Age: 83 Year
  Sex: Female
  Weight: 61.2356 kg

DRUGS (1)
  1. DIGITEK 0.125MG BERTEK PHA [Suspect]
     Indication: ATRIAL FIBRILLATION
     Dosage: ONE TAB EVERY DAY BY MOUTH MANY YEARS }10(?)
     Route: 048

REACTIONS (5)
  - BACK PAIN [None]
  - FALL [None]
  - FEELING ABNORMAL [None]
  - RESPIRATORY ARREST [None]
  - URINARY TRACT INFECTION [None]
